APPROVED DRUG PRODUCT: PRAMIPEXOLE DIHYDROCHLORIDE
Active Ingredient: PRAMIPEXOLE DIHYDROCHLORIDE
Strength: 1.5MG
Dosage Form/Route: TABLET;ORAL
Application: A202164 | Product #005
Applicant: MACLEODS PHARMACEUTICALS LTD
Approved: Sep 20, 2012 | RLD: No | RS: No | Type: DISCN